FAERS Safety Report 5872683-0 (Version None)
Quarter: 2008Q3

REPORT INFORMATION
  Report Type: 
  Country: None (occurrence: None)
  Receive Date: 20080905
  Receipt Date: 20080828
  Transmission Date: 20090109
  Serious: Yes (Hospitalization)
  Sender: FDA-Public Use
  Company Number: CN-ABBOTT-08P-035-0465182-00

PATIENT
  Sex: Female
  Weight: 71 kg

DRUGS (9)
  1. HUMIRA [Suspect]
     Indication: RHEUMATOID ARTHRITIS
     Route: 058
     Dates: start: 20071214, end: 20080516
  2. METHOTREXATE [Concomitant]
     Indication: RHEUMATOID ARTHRITIS
     Route: 048
     Dates: start: 20061208
  3. FOLIC ACID [Concomitant]
     Indication: VITAMIN SUPPLEMENTATION
     Route: 048
     Dates: start: 20061208
  4. PREDNISONE ACETATE [Concomitant]
     Indication: PAIN
     Dates: start: 20071030
  5. PREDNISONE ACETATE [Concomitant]
     Indication: SWELLING
  6. CALCIUM D3 [Concomitant]
     Indication: MINERAL SUPPLEMENTATION
     Route: 048
     Dates: start: 20061208
  7. ALFACALCIDOL [Concomitant]
     Indication: VITAMIN SUPPLEMENTATION
     Route: 048
     Dates: start: 20071208
  8. NIFEDIPINE [Concomitant]
     Indication: HYPERTENSION
     Route: 048
     Dates: start: 20080204
  9. VALSARTAN [Concomitant]
     Indication: HYPERTENSION
     Route: 048
     Dates: start: 20080204

REACTIONS (4)
  - LUNG NEOPLASM MALIGNANT [None]
  - PLEURAL EFFUSION [None]
  - PULMONARY HILAR ENLARGEMENT [None]
  - PULMONARY MASS [None]
